FAERS Safety Report 19064461 (Version 2)
Quarter: 2022Q2

REPORT INFORMATION
  Report Type: Spontaneous
  Country: SK (occurrence: SK)
  Receive Date: 20210326
  Receipt Date: 20220610
  Transmission Date: 20220721
  Serious: Yes (Hospitalization, Other)
  Sender: FDA-Public Use
  Company Number: SK-ALXN-A202103631

PATIENT
  Age: 27 Year
  Sex: Male

DRUGS (3)
  1. SOLIRIS [Suspect]
     Active Substance: ECULIZUMAB
     Indication: Paroxysmal nocturnal haemoglobinuria
     Dosage: 600 MG, QW
     Route: 042
     Dates: start: 202012
  2. SOLIRIS [Suspect]
     Active Substance: ECULIZUMAB
     Dosage: 900 MG, QW
     Route: 042
  3. SOLIRIS [Suspect]
     Active Substance: ECULIZUMAB
     Dosage: 900 MG, Q2W
     Route: 042

REACTIONS (15)
  - Chromaturia [Unknown]
  - Abdominal pain [Unknown]
  - Jaundice [Unknown]
  - Inappropriate schedule of product administration [Unknown]
  - Mean cell haemoglobin concentration abnormal [Unknown]
  - Differential white blood cell count abnormal [Unknown]
  - Reticulocyte percentage abnormal [Unknown]
  - Blood urea decreased [Unknown]
  - Blood creatinine increased [Unknown]
  - Blood bilirubin increased [Unknown]
  - Blood lactate dehydrogenase decreased [Unknown]
  - Bilirubin conjugated increased [Unknown]
  - Platelet count decreased [Unknown]
  - Aspartate aminotransferase increased [Unknown]
  - Haemoglobin decreased [Unknown]

NARRATIVE: CASE EVENT DATE: 20201201
